FAERS Safety Report 8791137 (Version 1)
Quarter: 2012Q4

REPORT INFORMATION
  Report Type: Spontaneous
  Country: US (occurrence: None)
  Receive Date: 20120914
  Receipt Date: 20120914
  Transmission Date: 20130627
  Serious: No
  Sender: FDA-Public Use
  Company Number: None

PATIENT
  Age: 69 Year
  Sex: Female

DRUGS (1)
  1. FORTEO [Suspect]
     Indication: SENILE OSTEOPOROSIS
     Route: 058
     Dates: start: 20120718, end: 20120806

REACTIONS (6)
  - Oedema peripheral [None]
  - Abdominal distension [None]
  - Heart rate decreased [None]
  - Blood pressure decreased [None]
  - Dizziness [None]
  - Activities of daily living impaired [None]
